FAERS Safety Report 7476634-7 (Version None)
Quarter: 2011Q2

REPORT INFORMATION
  Report Type: 
  Country: None (occurrence: None)
  Receive Date: 20110512
  Receipt Date: 20110427
  Transmission Date: 20111010
  Serious: Yes (Hospitalization, Other)
  Sender: FDA-Public Use
  Company Number: NL-AMGEN-NLDSP2011021806

PATIENT
  Age: 59 Year

DRUGS (2)
  1. PROLIA [Suspect]
     Indication: PRODUCT USED FOR UNKNOWN INDICATION
     Dosage: 60 MG, ONE TIME DOSE
     Route: 058
     Dates: start: 20101229
  2. ARANESP [Suspect]
     Indication: PERITONEAL DIALYSIS
     Dosage: 40 A?G, QWK

REACTIONS (2)
  - ANAEMIA [None]
  - PERITONITIS [None]
